FAERS Safety Report 16003555 (Version 1)
Quarter: 2019Q1

REPORT INFORMATION
  Report Type: Spontaneous
  Country: US (occurrence: US)
  Receive Date: 20190226
  Receipt Date: 20190226
  Transmission Date: 20190418
  Serious: Yes (Hospitalization)
  Sender: FDA-Public Use
  Company Number: US-JNJFOC-20190128230

PATIENT
  Sex: Male

DRUGS (1)
  1. LISTERINE ORIGINAL [Suspect]
     Active Substance: EUCALYPTOL\MENTHOL\METHYL SALICYLATE\THYMOL
     Indication: PRODUCT USED FOR UNKNOWN INDICATION
     Dosage: 1 PINT
     Route: 048
     Dates: start: 20190119

REACTIONS (3)
  - Incorrect route of product administration [Unknown]
  - Diplopia [Unknown]
  - Intentional product misuse [Unknown]

NARRATIVE: CASE EVENT DATE: 20190120
